FAERS Safety Report 13507275 (Version 1)
Quarter: 2017Q2

REPORT INFORMATION
  Report Type: Spontaneous
  Country: US (occurrence: US)
  Receive Date: 20170503
  Receipt Date: 20170503
  Transmission Date: 20170830
  Serious: No
  Sender: FDA-Public Use
  Company Number: US-ZYDUS-011633

PATIENT
  Age: 45 Year
  Sex: Female

DRUGS (3)
  1. ASCORBIC ACID/ERGOCALCIFEROL/FOLIC ACID/RETINOL/TOCOPHEROL/VITAMIN B NOS [Concomitant]
     Indication: PRODUCT USED FOR UNKNOWN INDICATION
  2. CALCIUM CARBONATE/CALCIUM LACTOGLUCONATE [Concomitant]
     Indication: PRODUCT USED FOR UNKNOWN INDICATION
  3. PAROXETINE. [Suspect]
     Active Substance: PAROXETINE
     Indication: PANIC DISORDER
     Route: 048
     Dates: start: 20160705

REACTIONS (2)
  - Rash [Not Recovered/Not Resolved]
  - Rash [Recovered/Resolved]

NARRATIVE: CASE EVENT DATE: 20160706
